FAERS Safety Report 22042116 (Version 1)
Quarter: 2023Q1

REPORT INFORMATION
  Report Type: Report from Study
  Country: US (occurrence: US)
  Receive Date: 20230227
  Receipt Date: 20230227
  Transmission Date: 20230417
  Serious: Yes (Death)
  Sender: FDA-Public Use
  Company Number: US-ABBVIE-4316087

PATIENT

DRUGS (1)
  1. HUMIRA [Suspect]
     Active Substance: ADALIMUMAB
     Indication: Rheumatoid arthritis
     Dosage: FORM STRENGTH 40 MILLIGRAM
     Route: 058

REACTIONS (1)
  - Death [Fatal]
